FAERS Safety Report 6133249-0 (Version None)
Quarter: 2009Q1

REPORT INFORMATION
  Report Type: 
  Country: None (occurrence: None)
  Receive Date: 20090326
  Receipt Date: 20090316
  Transmission Date: 20090719
  Serious: Yes (Death)
  Sender: FDA-Public Use
  Company Number: US-SP-2009-01128

PATIENT
  Age: 79 Year
  Sex: Male

DRUGS (2)
  1. BOTULISM AB [Suspect]
     Indication: IMMUNISATION
     Route: 065
     Dates: start: 20070510
  2. BOTULISM ANTITOXIN ABE [Suspect]
     Route: 065
     Dates: start: 20070510

REACTIONS (1)
  - DEATH [None]
